FAERS Safety Report 8756305 (Version 2)
Quarter: 2012Q4

REPORT INFORMATION
  Report Type: Spontaneous
  Country: DK (occurrence: None)
  Receive Date: 20120816
  Receipt Date: 20120906
  Transmission Date: 20130627
  Serious: Yes (Other)
  Sender: FDA-Public Use
  Company Number: 2012MA009977

PATIENT
  Age: 15 Year
  Sex: Female

DRUGS (2)
  1. FLUOXETINE [Suspect]
     Route: 048
  2. SEROQUEL XL [Concomitant]

REACTIONS (1)
  - Amnesia [None]
